FAERS Safety Report 12390725 (Version 1)
Quarter: 2016Q2

REPORT INFORMATION
  Report Type: Spontaneous
  Country: US (occurrence: US)
  Receive Date: 20160520
  Receipt Date: 20160520
  Transmission Date: 20160815
  Serious: Yes (Other)
  Sender: FDA-Public Use
  Company Number: US-PFIZER INC-2016253737

PATIENT
  Age: 44 Year
  Sex: Male
  Weight: 97.52 kg

DRUGS (5)
  1. PERCOCET [Concomitant]
     Active Substance: ACETAMINOPHEN\OXYCODONE HYDROCHLORIDE
     Indication: PAIN
     Dosage: 20 MG, 4X/DAY
     Route: 048
     Dates: start: 2015, end: 201603
  2. HYDROCODONE [Concomitant]
     Active Substance: HYDROCODONE
     Indication: BREAKTHROUGH PAIN
     Dosage: 20 MG, AS NEEDED (2-4X/DAY)
     Route: 048
     Dates: start: 201603
  3. LYRICA [Suspect]
     Active Substance: PREGABALIN
     Dosage: 200 MG, UNK
  4. LYRICA [Suspect]
     Active Substance: PREGABALIN
     Indication: SPINAL CORD INJURY
     Dosage: 200 MG, 2X/DAY
     Route: 048
     Dates: start: 201404
  5. LYRICA [Suspect]
     Active Substance: PREGABALIN
     Dosage: 150 MG, UNK

REACTIONS (11)
  - Feeling drunk [Recovering/Resolving]
  - Myalgia [Unknown]
  - Diarrhoea [Unknown]
  - Drug dose omission [Unknown]
  - Renal failure [Unknown]
  - Drug tolerance [Unknown]
  - Appendicitis perforated [Unknown]
  - Influenza like illness [Unknown]
  - Somnolence [Not Recovered/Not Resolved]
  - Pain [Unknown]
  - Vomiting [Unknown]

NARRATIVE: CASE EVENT DATE: 201404
